FAERS Safety Report 6005310-2 (Version None)
Quarter: 2008Q4

REPORT INFORMATION
  Report Type: 
  Country: None (occurrence: None)
  Receive Date: 20081215
  Receipt Date: 20081205
  Transmission Date: 20090506
  Serious: Yes (Other)
  Sender: FDA-Public Use
  Company Number: CHPA2008US21795

PATIENT
  Sex: Female

DRUGS (1)
  1. 4 WAY FAST ACTING NASAL SPRAY (NCH) (PHENYLEPHRINE) NASAL SPRAY [Suspect]
     Dosage: INTRANASAL
     Route: 055

REACTIONS (3)
  - DYSPNOEA [None]
  - HYPERSENSITIVITY [None]
  - NASAL CONGESTION [None]
